FAERS Safety Report 13449116 (Version 4)
Quarter: 2017Q3

REPORT INFORMATION
  Report Type: Spontaneous
  Country: US (occurrence: US)
  Receive Date: 20170417
  Receipt Date: 20170705
  Transmission Date: 20171127
  Serious: No
  Sender: FDA-Public Use
  Company Number: US-PFIZER INC-2017163410

PATIENT
  Age: 73 Year
  Sex: Male
  Weight: 195 kg

DRUGS (6)
  1. JANUMET [Concomitant]
     Active Substance: METFORMIN HYDROCHLORIDE\SITAGLIPTIN PHOSPHATE
     Indication: DIABETES MELLITUS
     Dosage: 1 DF, 1X/DAY [METFORMIN HYDROCHLORIDE 50MG, SITAGLIPTIN PHOSPHATE MONOHYDRATE 500 MG];1 TAB BED
     Route: 048
     Dates: start: 201405
  2. AMLODIPINE BESILATE [Suspect]
     Active Substance: AMLODIPINE BESYLATE
     Indication: HYPERTENSION
     Dosage: 10 MG, 1X/DAY
     Route: 048
     Dates: start: 20111117, end: 20121127
  3. ATORVASTATIN [Concomitant]
     Active Substance: ATORVASTATIN
     Indication: HYPERLIPIDAEMIA
     Dosage: 40 MG, 1X/DAY
     Route: 048
     Dates: start: 201405
  4. GABAPENTIN. [Concomitant]
     Active Substance: GABAPENTIN
     Dosage: 600 MG, UNK
  5. LOPRIN [Concomitant]
     Dosage: UNK
  6. LOSARTAN. [Suspect]
     Active Substance: LOSARTAN
     Dosage: UNK

REACTIONS (2)
  - Pruritus generalised [Recovered/Resolved]
  - Rash [Recovered/Resolved]
